FAERS Safety Report 6696233-4 (Version None)
Quarter: 2010Q2

REPORT INFORMATION
  Report Type: 
  Country: None (occurrence: None)
  Receive Date: 20100421
  Receipt Date: 20100415
  Transmission Date: 20101027
  Serious: Yes (Hospitalization)
  Sender: FDA-Public Use
  Company Number: 2010SP017804

PATIENT
  Age: 47 Year
  Sex: Female

DRUGS (26)
  1. GENTAMICIN SULFATE [Suspect]
     Dosage: 300 MG; QD; IV
     Route: 042
     Dates: start: 20100222, end: 20100223
  2. ROCURONIUM BROMIDE [Suspect]
     Dosage: 170 MG; QD; IV
     Route: 042
     Dates: start: 20100219, end: 20100219
  3. AUGMENTIN '125' [Concomitant]
     Dosage: IV
     Route: 042
     Dates: start: 20100219, end: 20100224
  4. AUGMENTIN '125' [Concomitant]
     Dosage: IV
     Route: 042
     Dates: start: 20100227, end: 20100302
  5. OMEPRAZOLE [Suspect]
     Dosage: 40 MG; QD; IV
     Route: 042
     Dates: start: 20100219, end: 20100302
  6. CANCIDAS [Suspect]
     Dosage: 50 MG; QD; IV
     Route: 042
     Dates: start: 20100222, end: 20100225
  7. SUFENTA PRESERVATIVE FREE [Suspect]
     Dosage: ;IV
     Route: 042
     Dates: start: 20100219, end: 20100302
  8. ACUPAN [Suspect]
     Dosage: ;IV
     Route: 042
     Dates: start: 20100220, end: 20100221
  9. HUMALOG [Suspect]
     Dosage: ;SC
     Route: 058
     Dates: start: 20100219
  10. ATARAX [Suspect]
     Dosage: 60 MG; QD; IV
     Route: 042
     Dates: start: 20100220, end: 20100220
  11. LOVENOX [Suspect]
     Dosage: ;SC
     Route: 058
     Dates: start: 20100220, end: 20100226
  12. NIMBEX [Suspect]
     Dosage: IV
     Route: 042
     Dates: start: 20100222, end: 20100224
  13. VECTARIDN (ALMITRINE DIMESILATE) [Suspect]
     Dosage: ;IV
     Route: 042
     Dates: start: 20100222, end: 20100224
  14. KETAMINE HCL [Suspect]
     Dosage: IV
     Dates: start: 20100219, end: 20100219
  15. ACTRAPID (INSULIN HUMAN) [Suspect]
     Dates: start: 20100219, end: 20100219
  16. TRACRIUM [Suspect]
     Dosage: 200 MG;QD; IV
     Route: 042
     Dates: start: 20100219, end: 20100219
  17. MIDAZOLAM HCL [Suspect]
     Dosage: 1 MG;QD;IV
     Route: 042
     Dates: start: 20100219, end: 20100219
  18. EPHEDRINE AGUETTANT (EPHEDRINE HYDROCHLORIDE) [Suspect]
     Dosage: IV
     Route: 042
     Dates: start: 20100219, end: 20100219
  19. PROPOFOL [Suspect]
     Dosage: IV
     Route: 042
     Dates: start: 20100219, end: 20100302
  20. METFORMIN HCL [Concomitant]
  21. PRAVASTATIN SODIUM [Concomitant]
  22. ANAFRANIL [Concomitant]
  23. SERESTA [Concomitant]
  24. LARGACTIL [Concomitant]
  25. ACTIBIL [Concomitant]
  26. TARDYFERON [Concomitant]

REACTIONS (8)
  - ACUTE RESPIRATORY DISTRESS SYNDROME [None]
  - BACTEROIDES INFECTION [None]
  - ENTEROBACTER INFECTION [None]
  - PLEURAL EFFUSION [None]
  - RENAL FAILURE [None]
  - SEPTIC SHOCK [None]
  - STEVENS-JOHNSON SYNDROME [None]
  - TOXIC SKIN ERUPTION [None]
